FAERS Safety Report 7362961-0 (Version None)
Quarter: 2011Q1

REPORT INFORMATION
  Report Type: 
  Country: None (occurrence: None)
  Receive Date: 20110321
  Receipt Date: 20090227
  Transmission Date: 20110831
  Serious: No
  Sender: FDA-Public Use
  Company Number: 2009BI006825

PATIENT
  Age: 35 Year
  Sex: Female

DRUGS (4)
  1. AVONEX [Concomitant]
     Indication: MULTIPLE SCLEROSIS
     Route: 030
     Dates: start: 20100226
  2. TYSABRI [Suspect]
     Route: 042
     Dates: start: 20101217, end: 20110304
  3. TYSABRI [Suspect]
     Route: 042
     Dates: start: 20100106, end: 20100106
  4. TYSABRI [Suspect]
     Indication: MULTIPLE SCLEROSIS
     Route: 042
     Dates: start: 20090219, end: 20090219

REACTIONS (4)
  - PARAESTHESIA [None]
  - EYE PAIN [None]
  - DYSGEUSIA [None]
  - PAIN IN EXTREMITY [None]
